FAERS Safety Report 5988532-6 (Version None)
Quarter: 2008Q4

REPORT INFORMATION
  Report Type: 
  Country: None (occurrence: None)
  Receive Date: 20081210
  Receipt Date: 20080627
  Transmission Date: 20090506
  Serious: No
  Sender: FDA-Public Use
  Company Number: US-BAYER-200811043BCC

PATIENT
  Age: 80 Year
  Sex: Male
  Weight: 86 kg

DRUGS (2)
  1. ALEVE (CAPLET) [Suspect]
     Indication: ARTHRALGIA
     Dosage: TOTAL DAILY DOSE: 440 MG  UNIT DOSE: 220 MG
     Route: 048
     Dates: start: 20080305
  2. METFORMIN HCL [Concomitant]
     Route: 048

REACTIONS (2)
  - FOREIGN BODY TRAUMA [None]
  - REGURGITATION [None]
